FAERS Safety Report 24259599 (Version 1)
Quarter: 2024Q3

REPORT INFORMATION
  Report Type: Spontaneous
  Country: ES (occurrence: ES)
  Receive Date: 20240828
  Receipt Date: 20240828
  Transmission Date: 20241017
  Serious: Yes (Death, Hospitalization, Other)
  Sender: MERCK
  Company Number: None

PATIENT
  Age: 49 Year
  Sex: Male
  Weight: 94 kg

DRUGS (5)
  1. RECARBRIO [Suspect]
     Active Substance: CILASTATIN\IMIPENEM ANHYDROUS\RELEBACTAM ANHYDROUS
     Indication: Wound infection
     Dosage: 1.0 VIAL EVERY 6 HOURS
     Route: 042
     Dates: start: 20240806
  2. COLISTIMETHATE SODIUM [Concomitant]
     Active Substance: COLISTIMETHATE SODIUM
     Indication: Wound infection
     Dosage: 6.0 MUI C/12 H  /100000 IU PULMONARY INHALATION 10 VIALS
     Route: 042
     Dates: start: 20240729
  3. METASEDIN [Concomitant]
     Indication: Pain
     Dosage: 10.0 MG EVERY 8 HOURS
     Route: 048
     Dates: start: 20240730, end: 20240812
  4. CEFIDEROCOL [Concomitant]
     Active Substance: CEFIDEROCOL
     Indication: Wound infection
     Dosage: 2.0 G/8 HOURS
     Dates: start: 20240721, end: 20240806
  5. LEVOMEPROMAZINE MALEATE [Concomitant]
     Active Substance: LEVOMEPROMAZINE MALEATE
     Indication: Agitation
     Dosage: 25.0 MG EVERY 24 HOURS AT NIGHT
     Route: 048
     Dates: start: 20240608, end: 20240611

REACTIONS (1)
  - Encephalopathy [Fatal]

NARRATIVE: CASE EVENT DATE: 20240810
